FAERS Safety Report 6692706-9 (Version None)
Quarter: 2010Q2

REPORT INFORMATION
  Report Type: 
  Country: None (occurrence: None)
  Receive Date: 20100422
  Receipt Date: 20100412
  Transmission Date: 20101027
  Serious: Yes (Other)
  Sender: FDA-Public Use
  Company Number: US-SANOFI-AVENTIS-2010SA021568

PATIENT
  Sex: Male

DRUGS (1)
  1. UROXATRAL [Suspect]
     Route: 048

REACTIONS (3)
  - CATARACT [None]
  - DYSPHAGIA [None]
  - PRODUCT QUALITY ISSUE [None]
